FAERS Safety Report 7538819-0 (Version None)
Quarter: 2011Q2

REPORT INFORMATION
  Report Type: 
  Country: None (occurrence: None)
  Receive Date: 20110610
  Receipt Date: 20091203
  Transmission Date: 20111010
  Serious: Yes (Other)
  Sender: FDA-Public Use
  Company Number: US-BAYER-200941696NA

PATIENT
  Age: 61 Year
  Sex: Female
  Weight: 73.1 kg

DRUGS (10)
  1. CEFAZOLIN [Concomitant]
     Dosage: 1 G, UNK
     Route: 042
     Dates: start: 20021130
  2. PLATELETS [Concomitant]
     Dosage: 10 U, UNK
     Dates: start: 20021130
  3. PREMARIN [Concomitant]
  4. HYDROCHLOROTHIAZIDE [Concomitant]
  5. HEPARIN [Concomitant]
     Dosage: 10000 U, UNK
     Route: 042
     Dates: start: 20021130
  6. TRASYLOL [Suspect]
     Indication: CORONARY ARTERY BYPASS
     Dosage: 200CC FOLLOWED BY 50CC PER HOUR
     Route: 042
     Dates: start: 20021130, end: 20021130
  7. XANAX [Concomitant]
  8. EPINEPHRINE [Concomitant]
     Dosage: UNK
     Route: 042
     Dates: start: 20021130
  9. MANNITOL [Concomitant]
     Dosage: 50 G, UNK
     Route: 042
     Dates: start: 20021130
  10. LIDOCAINE [Concomitant]
     Dosage: UNK
     Route: 042
     Dates: start: 20021130

REACTIONS (10)
  - FEAR [None]
  - PAIN [None]
  - RENAL FAILURE [None]
  - EMOTIONAL DISTRESS [None]
  - RENAL IMPAIRMENT [None]
  - RENAL INJURY [None]
  - ANXIETY [None]
  - UNEVALUABLE EVENT [None]
  - STRESS [None]
  - INJURY [None]
